FAERS Safety Report 11636318 (Version 1)
Quarter: 2015Q4

REPORT INFORMATION
  Report Type: Spontaneous
  Country: US (occurrence: None)
  Receive Date: 20151015
  Receipt Date: 20151015
  Transmission Date: 20160304
  Serious: No
  Sender: FDA-Public Use
  Company Number: None

PATIENT
  Age: 44 Year
  Sex: Female

DRUGS (1)
  1. ZYCLARA [Suspect]
     Active Substance: IMIQUIMOD
     Indication: ACTINIC KERATOSIS
     Dosage: APPLIED TO A SURFACE, USUSALLY THE SKIN
     Dates: start: 20150930, end: 20151014

REACTIONS (2)
  - Lip ulceration [None]
  - Lip pain [None]

NARRATIVE: CASE EVENT DATE: 20151008
